FAERS Safety Report 13032336 (Version 1)
Quarter: 2016Q4

REPORT INFORMATION
  Report Type: Report from Study
  Country: US (occurrence: US)
  Receive Date: 20161215
  Receipt Date: 20161215
  Transmission Date: 20170207
  Serious: No
  Sender: FDA-Public Use
  Company Number: PHEH2016US032666

PATIENT
  Sex: Male

DRUGS (1)
  1. COSENTYX [Suspect]
     Active Substance: SECUKINUMAB
     Indication: PSORIASIS
     Dosage: 150 MG, BIW
     Route: 058

REACTIONS (4)
  - Inappropriate schedule of drug administration [Unknown]
  - Rash pruritic [Unknown]
  - Pain [Unknown]
  - Incorrect dose administered [Unknown]
